FAERS Safety Report 5385382-9 (Version None)
Quarter: 2007Q3

REPORT INFORMATION
  Report Type: 
  Country: None (occurrence: None)
  Receive Date: 20070712
  Receipt Date: 20070702
  Transmission Date: 20080115
  Serious: Yes (Hospitalization)
  Sender: FDA-Public Use
  Company Number: AU-ROCHE-504772

PATIENT
  Age: 89 Year
  Sex: Female

DRUGS (11)
  1. CEFTRIAXONE SODIUM [Suspect]
     Indication: INFECTION
     Route: 065
     Dates: start: 20070223, end: 20070227
  2. CEPHALEXIN [Suspect]
     Indication: DRUG USE FOR UNKNOWN INDICATION
     Route: 065
     Dates: start: 20070212
  3. SERETIDE [Concomitant]
     Dosage: DRUG REPORTED AS SERETIDE ACCUHALER NOS.
  4. VENTOLIN [Concomitant]
  5. DIGOXIN [Concomitant]
  6. CLOPIDOGREL [Concomitant]
  7. ASPIRIN [Concomitant]
  8. LASIX [Concomitant]
  9. RAMIPRIL [Concomitant]
  10. PANAMAX [Concomitant]
  11. FLOXACILLIN SODIUM [Concomitant]
     Dates: start: 20070218

REACTIONS (2)
  - RASH [None]
  - RENAL FAILURE ACUTE [None]
